FAERS Safety Report 8386650 (Version 3)
Quarter: 2015Q3

REPORT INFORMATION
  Report Type: Report from Study
  Country: US (occurrence: US)
  Receive Date: 20120202
  Receipt Date: 20150902
  Transmission Date: 20151125
  Serious: Yes (Death)
  Sender: FDA-Public Use
  Company Number: US-ASTELLAS-2012US001171

PATIENT
  Sex: Male

DRUGS (1)
  1. ERLOTINIB [Suspect]
     Active Substance: ERLOTINIB
     Indication: BRAIN NEOPLASM MALIGNANT
     Route: 048

REACTIONS (2)
  - Off label use [Unknown]
  - Gastric disorder [Fatal]
